FAERS Safety Report 25633356 (Version 1)
Quarter: 2025Q3

REPORT INFORMATION
  Report Type: Spontaneous
  Country: EU (occurrence: EU)
  Receive Date: 20250801
  Receipt Date: 20250801
  Transmission Date: 20251021
  Serious: Yes (Life-Threatening, Hospitalization)
  Sender: ALEXION PHARMACEUTICALS
  Company Number: EU-ASTRAZENECA-202507EEA025885PT

PATIENT
  Sex: Female

DRUGS (3)
  1. IMFINZI [Suspect]
     Active Substance: DURVALUMAB
     Indication: Cholangiocarcinoma
     Route: 065
  2. GEMCITABINE [Suspect]
     Active Substance: GEMCITABINE
     Route: 065
  3. CISPLATIN [Suspect]
     Active Substance: CISPLATIN
     Route: 065

REACTIONS (1)
  - Thrombotic stroke [Unknown]
